FAERS Safety Report 24328178 (Version 1)
Quarter: 2024Q3

REPORT INFORMATION
  Report Type: Spontaneous
  Country: BR (occurrence: BR)
  Receive Date: 20240917
  Receipt Date: 20240917
  Transmission Date: 20241016
  Serious: Yes (Life-Threatening, Hospitalization, Other)
  Sender: SANDOZ
  Company Number: BR-002147023-NVSC2024BR183255

PATIENT
  Sex: Female

DRUGS (9)
  1. FLUOXETINE [Suspect]
     Active Substance: FLUOXETINE HYDROCHLORIDE
     Indication: Depression
     Dosage: UNK
     Route: 065
  2. FLUOXETINE [Suspect]
     Active Substance: FLUOXETINE HYDROCHLORIDE
     Indication: Panic disorder
  3. ROSUVASTATIN [Suspect]
     Active Substance: ROSUVASTATIN\ROSUVASTATIN CALCIUM
     Indication: Product used for unknown indication
     Dosage: UNK
     Route: 065
  4. ALPRAZOLAM [Concomitant]
     Active Substance: ALPRAZOLAM
     Indication: Product used for unknown indication
     Dosage: UNK
     Route: 065
  5. CAPTOPRIL [Concomitant]
     Active Substance: CAPTOPRIL
     Indication: Cardiac disorder
     Dosage: UNK, BID
     Route: 065
  6. BISOPROLOL FUMARATE [Concomitant]
     Active Substance: BISOPROLOL FUMARATE
     Indication: Product used for unknown indication
     Dosage: ?2.5?, UNK
     Route: 065
  7. WARFARIN SODIUM [Concomitant]
     Active Substance: WARFARIN SODIUM
     Indication: Blood disorder
     Dosage: UNK, OTHER (HALF IN A DAY, AND ONE IN THE FOLLOWING DAY)
     Route: 065
  8. PROPRANOLOL [Concomitant]
     Active Substance: PROPRANOLOL HYDROCHLORIDE
     Indication: Product used for unknown indication
     Dosage: UNK
     Route: 065
  9. PURAN [Concomitant]
     Active Substance: LEVOTHYROXINE SODIUM
     Indication: Product used for unknown indication
     Dosage: UNK
     Route: 065

REACTIONS (22)
  - Thrombosis [Unknown]
  - Embolism [Unknown]
  - Feeling abnormal [Unknown]
  - Gait disturbance [Unknown]
  - Near death experience [Unknown]
  - Thyroid disorder [Unknown]
  - Lung neoplasm malignant [Not Recovered/Not Resolved]
  - Breast cancer [Unknown]
  - Neoplasm malignant [Unknown]
  - Benign lymph node neoplasm [Unknown]
  - Uterine leiomyoma [Unknown]
  - Brain neoplasm [Recovering/Resolving]
  - Metastatic lymphoma [Not Recovered/Not Resolved]
  - Joint dislocation [Recovering/Resolving]
  - Arthritis [Unknown]
  - Osteoarthritis [Unknown]
  - Pain in extremity [Unknown]
  - Bone pain [Unknown]
  - Ocular discomfort [Unknown]
  - Blood pressure abnormal [Recovering/Resolving]
  - Hormone level abnormal [Not Recovered/Not Resolved]
  - Pain [Unknown]

NARRATIVE: CASE EVENT DATE: 20050101
